FAERS Safety Report 19972762 (Version 1)
Quarter: 2021Q4

REPORT INFORMATION
  Report Type: Spontaneous
  Country: US (occurrence: US)
  Receive Date: 20211019
  Receipt Date: 20211019
  Transmission Date: 20220303
  Serious: No
  Sender: FDA-Public Use
  Company Number: None

PATIENT
  Age: 19 Year
  Weight: 63 kg

DRUGS (5)
  1. LAMOTRIGINE [Suspect]
     Active Substance: LAMOTRIGINE
     Indication: Bipolar disorder
     Dosage: ?          QUANTITY:4 TABLET(S);
     Route: 048
     Dates: start: 20211012, end: 20211018
  2. SPIRONOLACTONE [Concomitant]
     Active Substance: SPIRONOLACTONE
  3. LAMOTRIGINE [Concomitant]
     Active Substance: LAMOTRIGINE
  4. PROGESTERONE [Concomitant]
     Active Substance: PROGESTERONE
  5. ESTRADIOL VALERATE [Concomitant]
     Active Substance: ESTRADIOL VALERATE

REACTIONS (2)
  - Psychotic disorder [None]
  - Hallucination, visual [None]

NARRATIVE: CASE EVENT DATE: 20211017
